FAERS Safety Report 9837988 (Version 2)
Quarter: 2014Q1

REPORT INFORMATION
  Report Type: Spontaneous
  Country: US (occurrence: US)
  Receive Date: 20140123
  Receipt Date: 20140219
  Transmission Date: 20141002
  Serious: Yes (Death, Hospitalization)
  Sender: FDA-Public Use
  Company Number: US-BAXTER-2014BAX002358

PATIENT
  Sex: Male

DRUGS (2)
  1. DIANEAL PD2 (ULTRABAG) [Suspect]
     Indication: PERITONEAL DIALYSIS
     Route: 033
     Dates: end: 20140114
  2. DIANEAL PD2 (ULTRABAG) [Suspect]
     Indication: PERITONEAL DIALYSIS
     Route: 033
     Dates: end: 20140114

REACTIONS (1)
  - Gastrointestinal necrosis [Fatal]
